FAERS Safety Report 5525366-0 (Version None)
Quarter: 2007Q4

REPORT INFORMATION
  Report Type: 
  Country: None (occurrence: None)
  Receive Date: 20071120
  Receipt Date: 20070816
  Transmission Date: 20080405
  Serious: No
  Sender: FDA-Public Use
  Company Number: US-1163996

PATIENT
  Sex: Female

DRUGS (1)
  1. NEVANAC [Suspect]
     Dosage: OPHTHALMIC
     Route: 047
     Dates: start: 20070731

REACTIONS (2)
  - PHOTOPHOBIA [None]
  - ULCERATIVE KERATITIS [None]
